FAERS Safety Report 13697779 (Version 3)
Quarter: 2017Q3

REPORT INFORMATION
  Report Type: Report from Study
  Country: TW (occurrence: TW)
  Receive Date: 20170628
  Receipt Date: 20170920
  Transmission Date: 20171127
  Serious: Yes (Other)
  Sender: FDA-Public Use
  Company Number: TW-JNJFOC-20170620036

PATIENT
  Age: 13 Year
  Sex: Male
  Weight: 99.5 kg

DRUGS (6)
  1. LODITON [Concomitant]
     Indication: DIABETES MELLITUS
     Route: 065
  2. STELARA [Suspect]
     Active Substance: USTEKINUMAB
     Indication: PSORIASIS
     Route: 058
     Dates: start: 20160602
  3. STELARA [Suspect]
     Active Substance: USTEKINUMAB
     Indication: PSORIASIS
     Route: 058
     Dates: start: 20160630
  4. STELARA [Suspect]
     Active Substance: USTEKINUMAB
     Indication: PSORIASIS
     Route: 058
     Dates: start: 20161212
  5. STELARA [Suspect]
     Active Substance: USTEKINUMAB
     Indication: PSORIASIS
     Route: 058
     Dates: start: 20170313, end: 20170605
  6. STELARA [Suspect]
     Active Substance: USTEKINUMAB
     Indication: PSORIASIS
     Route: 058
     Dates: start: 20160919

REACTIONS (9)
  - Pyrexia [Not Recovered/Not Resolved]
  - Otitis media acute [Unknown]
  - Psoriasis [Unknown]
  - Dyspnoea [Unknown]
  - Hepatic steatosis [Not Recovered/Not Resolved]
  - Diabetes mellitus [Unknown]
  - Renal cyst [Unknown]
  - Upper respiratory tract infection [Unknown]
  - Stress [Unknown]

NARRATIVE: CASE EVENT DATE: 20160630
